FAERS Safety Report 5817158-X (Version None)
Quarter: 2008Q3

REPORT INFORMATION
  Report Type: 
  Country: None (occurrence: None)
  Receive Date: 20080722
  Receipt Date: 20080714
  Transmission Date: 20090109
  Serious: Yes (Hospitalization, Congenital Anomaly, Other)
  Sender: FDA-Public Use
  Company Number: SE-WYE-G01873208

PATIENT
  Sex: Female
  Weight: 2 kg

DRUGS (1)
  1. EFFEXOR [Suspect]
     Route: 064
     Dates: start: 20070801, end: 20080512

REACTIONS (7)
  - CONGENITAL HEART VALVE DISORDER [None]
  - CONGENITAL PULMONARY HYPERTENSION [None]
  - CYANOSIS [None]
  - OXYGEN SATURATION DECREASED [None]
  - PERSISTENT FOETAL CIRCULATION [None]
  - RIGHT VENTRICULAR HYPERTROPHY [None]
  - UMBILICAL CORD AROUND NECK [None]
